FAERS Safety Report 7701627-1 (Version None)
Quarter: 2011Q3

REPORT INFORMATION
  Report Type: 
  Country: None (occurrence: None)
  Receive Date: 20110822
  Receipt Date: 20110818
  Transmission Date: 20111222
  Serious: Yes (Death)
  Sender: FDA-Public Use
  Company Number: CN-ASTRAZENECA-2011SE49379

PATIENT
  Age: 46 Year
  Sex: Female

DRUGS (1)
  1. LIDOCAINE [Suspect]
     Indication: VENTRICULAR EXTRASYSTOLES
     Route: 042

REACTIONS (2)
  - HEPATIC ENCEPHALOPATHY [None]
  - COMA [None]
